FAERS Safety Report 7784455-0 (Version None)
Quarter: 2011Q3

REPORT INFORMATION
  Report Type: 
  Country: None (occurrence: None)
  Receive Date: 20110928
  Receipt Date: 20110919
  Transmission Date: 20111222
  Serious: Yes (Hospitalization, Other)
  Sender: FDA-Public Use
  Company Number: US-BAYER-2011-015937

PATIENT
  Age: 30 Year
  Sex: Female
  Weight: 68 kg

DRUGS (12)
  1. IBUPROFEN [Concomitant]
  2. LORTAB [Concomitant]
  3. CARISOPRODOL [Concomitant]
  4. H2 BLOCKER [Concomitant]
     Indication: ABDOMINAL PAIN UPPER
  5. HYDROCODONE BITARTRATE AND ACETAMINOPHEN [Concomitant]
  6. MULTI-VITAMIN [Concomitant]
  7. YAZ [Suspect]
     Indication: PRODUCT USED FOR UNKNOWN INDICATION
     Dosage: UNK
     Dates: start: 20060101, end: 20090501
  8. ZANTAC [Concomitant]
     Indication: ABDOMINAL PAIN UPPER
  9. PAXIL [Concomitant]
     Dosage: 20 MG, UNK
  10. PHENTERMINE [Concomitant]
  11. CHANTIX [Concomitant]
  12. DIAZEPAM [Concomitant]

REACTIONS (4)
  - CHOLECYSTITIS CHRONIC [None]
  - PAIN [None]
  - GALLBLADDER DISORDER [None]
  - ANXIETY [None]
